FAERS Safety Report 7725089-3 (Version None)
Quarter: 2011Q3

REPORT INFORMATION
  Report Type: 
  Country: None (occurrence: None)
  Receive Date: 20110901
  Receipt Date: 20110826
  Transmission Date: 20111222
  Serious: Yes (Hospitalization)
  Sender: FDA-Public Use
  Company Number: DE-PFIZER INC-2011186039

PATIENT
  Age: 75 Year
  Sex: Female

DRUGS (5)
  1. SIMVASTATIN [Concomitant]
     Dosage: 20 MG, UNK
  2. PANTOPRAZOLE [Concomitant]
     Dosage: 40 MG, UNK
  3. VOMEX [Concomitant]
     Dosage: UNK
     Dates: start: 20110805
  4. SUTENT [Suspect]
     Indication: RENAL CELL CARCINOMA
     Dosage: DOSE ACCORDING TO PROTOCOL
     Dates: start: 20110809
  5. LEVOTHYROXINE SODIUM [Concomitant]
     Dosage: 88 UG, UNK

REACTIONS (1)
  - CARDIAC FAILURE [None]
